FAERS Safety Report 7023841-3 (Version None)
Quarter: 2010Q4

REPORT INFORMATION
  Report Type: 
  Country: None (occurrence: None)
  Receive Date: 20101001
  Receipt Date: 20100928
  Transmission Date: 20110411
  Serious: Yes (Hospitalization)
  Sender: FDA-Public Use
  Company Number: IT-BAYER-201040250GPV

PATIENT
  Age: 79 Year
  Sex: Male

DRUGS (6)
  1. NEXAVAR [Suspect]
     Indication: RENAL CELL CARCINOMA
     Dosage: TOTAL DAILY DOSE: 800 MG  UNIT DOSE: 200 MG
     Route: 048
     Dates: start: 20100910, end: 20100913
  2. SIMVASTATIN [Concomitant]
     Route: 048
     Dates: start: 20100101, end: 20100917
  3. OMEPRAZOLE [Concomitant]
     Route: 048
     Dates: start: 20081101, end: 20100917
  4. TACHIDOL [Concomitant]
     Route: 048
     Dates: start: 20100801, end: 20100917
  5. ALFUZOSIN HCL [Concomitant]
     Route: 048
     Dates: start: 20081101, end: 20100917
  6. CORTONE ACETATO [Concomitant]
     Route: 048
     Dates: start: 20081101, end: 20100917

REACTIONS (4)
  - COUGH [None]
  - HAEMOPTYSIS [None]
  - NASOPHARYNGITIS [None]
  - PNEUMONIA [None]
